FAERS Safety Report 12341665 (Version 1)
Quarter: 2016Q2

REPORT INFORMATION
  Report Type: Spontaneous
  Country: US (occurrence: None)
  Receive Date: 20160505
  Receipt Date: 20160505
  Transmission Date: 20160815
  Serious: No
  Sender: FDA-Public Use
  Company Number: None

PATIENT
  Age: 25 Year
  Sex: Female

DRUGS (1)
  1. HUMIRA [Suspect]
     Active Substance: ADALIMUMAB
     Indication: LIP NEOPLASM MALIGNANT STAGE UNSPECIFIED
     Dosage: 40 MG Q14  DAYS, SQ
     Route: 058
     Dates: start: 20151202

REACTIONS (3)
  - Injection site erythema [None]
  - Injection site pruritus [None]
  - Lymphadenopathy [None]

NARRATIVE: CASE EVENT DATE: 20160414
